FAERS Safety Report 5627065-3 (Version None)
Quarter: 2008Q1

REPORT INFORMATION
  Report Type: 
  Country: None (occurrence: None)
  Receive Date: 20080116
  Receipt Date: 20070105
  Transmission Date: 20080703
  Serious: Yes (Other)
  Sender: FDA-Public Use
  Company Number: BDI-008994

PATIENT
  Age: 56 Year
  Sex: Female
  Weight: 104.5 kg

DRUGS (2)
  1. PROHANCE [Suspect]
     Indication: NUCLEAR MAGNETIC RESONANCE IMAGING
     Dosage: 15 ML ONCE IV
     Route: 042
     Dates: start: 20061228, end: 20061228
  2. PROHANCE [Suspect]
     Indication: RENAL FAILURE
     Dosage: 15 ML ONCE IV
     Route: 042
     Dates: start: 20061228, end: 20061228

REACTIONS (4)
  - BLOOD PRESSURE INCREASED [None]
  - DYSPNOEA [None]
  - RALES [None]
  - WHEEZING [None]
